FAERS Safety Report 8612440 (Version 2)
Quarter: 2013Q1

REPORT INFORMATION
  Report Type: Spontaneous
  Country: JP (occurrence: JP)
  Receive Date: 20120613
  Receipt Date: 20130115
  Transmission Date: 20140127
  Serious: Yes (Hospitalization, Disabling)
  Sender: FDA-Public Use
  Company Number: JP-ROCHE-1075021

PATIENT
  Age: 65 None
  Sex: Female
  Weight: 45 kg

DRUGS (6)
  1. AVASTIN [Suspect]
     Indication: BREAST CANCER METASTATIC
     Route: 041
     Dates: start: 20111220, end: 20120124
  2. AVASTIN [Suspect]
     Indication: BREAST CANCER METASTATIC
     Route: 041
     Dates: start: 20120110, end: 20120110
  3. AVASTIN [Suspect]
     Indication: BREAST CANCER METASTATIC
     Route: 041
     Dates: start: 20120124, end: 20120124
  4. AVASTIN [Suspect]
     Indication: BREAST CANCER METASTATIC
     Route: 041
     Dates: start: 20120221, end: 20120221
  5. TAXOL [Suspect]
     Indication: BREAST CANCER METASTATIC
     Dosage: DOSAGE IS UNCERTAIN.
     Route: 041
     Dates: start: 20111108, end: 20120221
  6. TAXOL [Suspect]
     Indication: BREAST CANCER METASTATIC
     Dosage: DOSAGE IS UNCERTAIN.
     Route: 041
     Dates: start: 20111220, end: 20120221

REACTIONS (2)
  - Interstitial lung disease [Recovered/Resolved with Sequelae]
  - White blood cell count decreased [Unknown]
